APPROVED DRUG PRODUCT: EDURANT
Active Ingredient: RILPIVIRINE HYDROCHLORIDE
Strength: EQ 25MG BASE
Dosage Form/Route: TABLET;ORAL
Application: N202022 | Product #001 | TE Code: AB
Applicant: JANSSEN PRODUCTS LP
Approved: May 20, 2011 | RLD: Yes | RS: Yes | Type: RX

EXCLUSIVITY:
Code: PED | Date: Sep 15, 2027
Code: NPP | Date: Mar 15, 2027